FAERS Safety Report 6396184-9 (Version None)
Quarter: 2009Q4

REPORT INFORMATION
  Report Type: 
  Country: None (occurrence: None)
  Receive Date: 20091010
  Receipt Date: 20091005
  Transmission Date: 20100525
  Serious: Yes (Other)
  Sender: FDA-Public Use
  Company Number: US-JNJCH-2009026553

PATIENT
  Age: 65 Year
  Sex: Female
  Weight: 59 kg

DRUGS (4)
  1. ROGAINE [Suspect]
     Indication: ALOPECIA
     Dosage: TEXT:1 ML 1 X A DAY
     Route: 061
     Dates: start: 20090701, end: 20090925
  2. LISINOPRIL [Concomitant]
     Indication: CARDIAC DISORDER
     Dosage: TEXT:ONE 5 MG 1 X DAY
     Route: 065
     Dates: start: 20030101
  3. WARFARIN SODIUM [Concomitant]
     Indication: BLOOD DISORDER
     Dosage: TEXT:ONE 5 MG 1 X DAY
     Route: 065
  4. ATENOLOL [Concomitant]
     Indication: CARDIAC DISORDER
     Dosage: TEXT:ONE 50 MG 1 X DAY
     Route: 065
     Dates: start: 20030101

REACTIONS (1)
  - HEART RATE INCREASED [None]
